FAERS Safety Report 4921293-8 (Version None)
Quarter: 2006Q1

REPORT INFORMATION
  Report Type: 
  Country: None (occurrence: None)
  Receive Date: 20060221
  Receipt Date: 20060213
  Transmission Date: 20060701
  Serious: Yes (Hospitalization)
  Sender: FDA-Public Use
  Company Number: 2006018874

PATIENT
  Age: 65 Year
  Sex: Female

DRUGS (4)
  1. FRAGMIN [Suspect]
     Indication: THROMBOSIS PROPHYLAXIS
     Dosage: 2500 I.U. (2500 I.U., 1 IN  24 HR), SUBCUTANEOUS
     Route: 058
     Dates: start: 20060128, end: 20060130
  2. CEFUROXIME [Concomitant]
  3. AMIKACIN [Concomitant]
  4. PANTOPRAZOLE SODIUM [Concomitant]

REACTIONS (3)
  - INCISION SITE COMPLICATION [None]
  - POST PROCEDURAL HAEMATOMA [None]
  - WOUND SECRETION [None]
